FAERS Safety Report 12832088 (Version 6)
Quarter: 2017Q1

REPORT INFORMATION
  Report Type: Report from Study
  Country: PA (occurrence: PA)
  Receive Date: 20161010
  Receipt Date: 20170214
  Transmission Date: 20170428
  Serious: Yes (Hospitalization)
  Sender: FDA-Public Use
  Company Number: PHHY2016PA080671

PATIENT
  Age: 16 Year
  Sex: Female
  Weight: 61.68 kg

DRUGS (1)
  1. GILENYA [Suspect]
     Active Substance: FINGOLIMOD HYDROCHLORIDE
     Indication: MULTIPLE SCLEROSIS
     Dosage: 0.5 MG, QD
     Route: 048
     Dates: start: 20160607, end: 20161004

REACTIONS (16)
  - Nausea [Unknown]
  - Electroencephalogram abnormal [Unknown]
  - Gait disturbance [Unknown]
  - Postictal state [Unknown]
  - Aphasia [Unknown]
  - Multiple sclerosis relapse [Not Recovered/Not Resolved]
  - Monoparesis [Unknown]
  - Balance disorder [Unknown]
  - Tremor [Unknown]
  - Seizure [Not Recovered/Not Resolved]
  - Syncope [Unknown]
  - Dizziness postural [Unknown]
  - Somnolence [Unknown]
  - Vomiting [Unknown]
  - Headache [Unknown]
  - Drug administered to patient of inappropriate age [Unknown]

NARRATIVE: CASE EVENT DATE: 20160607
